FAERS Safety Report 20809520 (Version 2)
Quarter: 2022Q2

REPORT INFORMATION
  Report Type: Spontaneous
  Country: IN (occurrence: IN)
  Receive Date: 20220510
  Receipt Date: 20220617
  Transmission Date: 20220721
  Serious: Yes (Other)
  Sender: FDA-Public Use
  Company Number: IN-PFIZER INC-202200649901

PATIENT
  Age: 52 Year
  Sex: Female
  Weight: 72.6 kg

DRUGS (5)
  1. PALBOCICLIB [Suspect]
     Active Substance: PALBOCICLIB
     Dosage: 125 MG
     Route: 048
     Dates: start: 20220210
  2. FULVESTRANT [Concomitant]
     Active Substance: FULVESTRANT
     Dosage: 250 MG (ON BOTH GLUTEAL REGIONS)
     Route: 030
  3. RESTYL [Concomitant]
     Dosage: 0.25 MG, 1X/DAY (AT BEDTIME) FOR 15 DAYS
  4. TAPAL [ACETYLSALICYLIC ACID] [Concomitant]
     Dosage: 500 MG, 2X/DAY FOR 15 DAYS
  5. CALCIUM\CHOLECALCIFEROL [Concomitant]
     Active Substance: CALCIUM\CHOLECALCIFEROL
     Dosage: 500 MG, 2X/DAY FOR 1 MONTH

REACTIONS (7)
  - Weight decreased [Unknown]
  - Haemoglobin decreased [Unknown]
  - Back pain [Unknown]
  - Bone pain [Recovering/Resolving]
  - Insomnia [Unknown]
  - Asthenia [Unknown]
  - Neoplasm progression [Unknown]
